FAERS Safety Report 5149650-8 (Version None)
Quarter: 2006Q4

REPORT INFORMATION
  Report Type: 
  Country: None (occurrence: None)
  Receive Date: 20061113
  Receipt Date: 20060705
  Transmission Date: 20070319
  Serious: No
  Sender: FDA-Public Use
  Company Number: US-GLAXOSMITHKLINE-A0611157A

PATIENT
  Sex: Male
  Weight: 69.5 kg

DRUGS (5)
  1. COREG [Suspect]
     Dosage: 25MG TWICE PER DAY
     Route: 048
     Dates: start: 20020101
  2. ALTACE [Concomitant]
     Dosage: 20MG TWICE PER DAY
     Route: 048
     Dates: start: 19980101
  3. LIPITOR [Concomitant]
     Dosage: 40MG AT NIGHT
     Route: 048
     Dates: start: 20020101
  4. FLOMAX [Concomitant]
     Dosage: .4MG PER DAY
     Route: 048
     Dates: start: 20000101
  5. IMDUR [Concomitant]
     Dosage: 60MG PER DAY
     Route: 048
     Dates: start: 20060101

REACTIONS (7)
  - DISCOMFORT [None]
  - PAIN IN EXTREMITY [None]
  - PALLOR [None]
  - PARAESTHESIA [None]
  - PERIPHERAL COLDNESS [None]
  - SKIN DISCOLOURATION [None]
  - TEMPERATURE INTOLERANCE [None]
